FAERS Safety Report 9401422 (Version 1)
Quarter: 2013Q3

REPORT INFORMATION
  Report Type: Spontaneous
  Country: US (occurrence: US)
  Receive Date: 20130715
  Receipt Date: 20130715
  Transmission Date: 20140515
  Serious: Yes (Other)
  Sender: FDA-Public Use
  Company Number: US-JNJFOC-20130708393

PATIENT
  Age: 59 Year
  Sex: Female

DRUGS (2)
  1. NICOTINE POLACRILEX GUM 4 MG [Suspect]
     Indication: SMOKING CESSATION THERAPY
     Dosage: 4 MG GUM, 8 PIECES A DAY
     Route: 065
     Dates: start: 2010
  2. NICOTINE POLACRILEX GUM 4 MG [Suspect]
     Indication: SMOKING CESSATION THERAPY
     Dosage: 4 MG GUM, 2 PIECES A DAY
     Route: 065

REACTIONS (2)
  - Nicotine dependence [Not Recovered/Not Resolved]
  - Intentional drug misuse [Unknown]
